FAERS Safety Report 8900312 (Version 2)
Quarter: 2012Q4

REPORT INFORMATION
  Report Type: 
  Country: GB (occurrence: GB)
  Receive Date: 20121109
  Receipt Date: 20121127
  Transmission Date: 20130627
  Serious: Yes (Death, Other)
  Sender: FDA-Public Use
  Company Number: PHFR2012GB005849

PATIENT
  Age: 51 Year
  Sex: Male
  Weight: 105 kg

DRUGS (7)
  1. CLOZARIL [Suspect]
     Indication: SCHIZOPHRENIA
     Dosage: 300 mg, daily
     Route: 048
     Dates: start: 200012
  2. CLOZARIL [Suspect]
     Dosage: 300 UNK, UNK
  3. CLOZARIL [Suspect]
     Dosage: 400 UNK, UNK
  4. SIMVASTATIN [Concomitant]
     Indication: LIPIDS INCREASED
     Dosage: 20 g, UNK
     Route: 048
  5. LANSOPRAZOLE [Concomitant]
  6. OMEPRAZOL [Concomitant]
     Indication: DYSPEPSIA
     Dosage: 40 mg, daily
     Route: 048
  7. HYOSCINE [Concomitant]
     Indication: SALIVARY HYPERSECRETION
     Dosage: 300 ug, BID
     Route: 048

REACTIONS (7)
  - Cardiac arrest [Fatal]
  - Epilepsy [Fatal]
  - Grand mal convulsion [Fatal]
  - Myoclonus [Fatal]
  - Convulsion [Fatal]
  - Sudden death [Fatal]
  - Fall [Unknown]
